FAERS Safety Report 4391061-7 (Version None)
Quarter: 2004Q2

REPORT INFORMATION
  Report Type: 
  Country: None (occurrence: None)
  Receive Date: 20040621
  Receipt Date: 20031114
  Transmission Date: 20050107
  Serious: Yes (Other)
  Sender: FDA-Public Use
  Company Number: USA-2003-0006288

PATIENT
  Age: 38 Year
  Sex: Male
  Weight: 129.3 kg

DRUGS (8)
  1. OXYCONTIN [Suspect]
     Indication: PAIN
     Dosage: 20 MG, SEE TEXT
     Dates: start: 20000522
  2. NEURONTIN [Concomitant]
  3. LORTAB [Concomitant]
  4. ZANAFLEX [Concomitant]
  5. LUVOX [Concomitant]
  6. SKELAXIN [Concomitant]
  7. LOTREL [Concomitant]
  8. XANAX [Concomitant]

REACTIONS (18)
  - CHEST DISCOMFORT [None]
  - DEPRESSION [None]
  - DRUG DEPENDENCE [None]
  - DRUG WITHDRAWAL SYNDROME [None]
  - DYSPNOEA [None]
  - EMOTIONAL DISTRESS [None]
  - HEADACHE [None]
  - HYPERLIPIDAEMIA [None]
  - INSOMNIA [None]
  - LOCAL SWELLING [None]
  - NAUSEA [None]
  - OBSESSIVE-COMPULSIVE DISORDER [None]
  - OEDEMA PERIPHERAL [None]
  - PAIN [None]
  - PHARYNGITIS [None]
  - SINUSITIS [None]
  - TREMOR [None]
  - WEIGHT DECREASED [None]
